FAERS Safety Report 4267601-5 (Version None)
Quarter: 2004Q1

REPORT INFORMATION
  Report Type: 
  Country: None (occurrence: None)
  Receive Date: 20040109
  Receipt Date: 20031001
  Transmission Date: 20041129
  Serious: Yes (Other)
  Sender: FDA-Public Use
  Company Number: US-GLAXOSMITHKLINE-A0428220A

PATIENT
  Sex: Male

DRUGS (3)
  1. WELLBUTRIN [Suspect]
     Indication: ILL-DEFINED DISORDER
     Route: 048
     Dates: start: 20030801
  2. PAXIL [Suspect]
     Indication: ILL-DEFINED DISORDER
  3. ANTIDEPRESSANTS [Suspect]
     Indication: ILL-DEFINED DISORDER
     Route: 065
     Dates: start: 19990101

REACTIONS (1)
  - CONVULSION [None]
